FAERS Safety Report 8264898-1 (Version None)
Quarter: 2012Q2

REPORT INFORMATION
  Report Type: 
  Country: None (occurrence: None)
  Receive Date: 20120403
  Receipt Date: 20120321
  Transmission Date: 20120825
  Serious: Yes (Other)
  Sender: FDA-Public Use
  Company Number: 1234460

PATIENT
  Age: 16 Year
  Sex: Female
  Weight: 48 kg

DRUGS (52)
  1. VINCRISTINE SULFATE [Suspect]
     Indication: PRODUCT USED FOR UNKNOWN INDICATION
     Dosage: 1.0MG, INTRAVENOUS (NOT OTHERWISE SPECIFIED)
     Route: 042
  2. (ALUMINUM HYDROXIDE) [Concomitant]
  3. CYTARABINE [Concomitant]
  4. (DEXAMETHASONE) [Concomitant]
  5. (DOCUSATE SODIUM) [Concomitant]
  6. ENOXAPARIN [Concomitant]
  7. FLUCONAZOLE [Concomitant]
  8. GRANISETRON [Concomitant]
  9. HEPARIN SODIUM [Concomitant]
  10. METHOTREXATE [Concomitant]
  11. (MINERAL OIL EMULSION) [Concomitant]
  12. PREDNISONE [Concomitant]
  13. SUCRALFATE [Concomitant]
  14. CESAMET [Concomitant]
  15. FUROSEMIDE [Concomitant]
  16. MAGNESIUM SULFATE [Concomitant]
  17. MIDAZOLAM [Concomitant]
  18. MIRTAZAPINE [Concomitant]
  19. ONDANSETRON [Concomitant]
  20. PANTOPRAZOLE [Concomitant]
  21. (RATIO-ACLAVULANATE) [Concomitant]
  22. (TICARCILLIN) [Concomitant]
  23. DIPHENHYDRAMINE HCL [Concomitant]
  24. ELSPAR [Concomitant]
  25. (MELATONIN) [Concomitant]
  26. METHYLPREDNISOLONE SODIUM SUCCINATE [Concomitant]
  27. (ALTEPLASE) [Concomitant]
  28. (ZINECARD /01200101/) [Concomitant]
  29. DIMENHYDRINATE [Concomitant]
  30. DROSPIRENONE AND ETHINYL ESTRADIOL [Concomitant]
  31. HYDROMORPHONE HCL [Concomitant]
  32. (NORETHINODRONE) [Concomitant]
  33. SODIUM CHLORIDE [Concomitant]
  34. FENOFIBRATE [Concomitant]
  35. FENTANYL CITRATE [Concomitant]
  36. HYDROCORTISONE [Concomitant]
  37. (MERCAPTOPURINE) [Concomitant]
  38. METOCLOPRAMIDE [Concomitant]
  39. PENTAMIDINE ISETHIONATE [Concomitant]
  40. POTASSIUM CHLORIDE [Concomitant]
  41. ALLOPURINOL [Concomitant]
  42. CALCIUM CARBONATE [Concomitant]
  43. LANSOPRAZOLE [Concomitant]
  44. LEUCOVORIN CALCIUM [Concomitant]
  45. LORAZEPAM [Concomitant]
  46. QUETIAPINE [Concomitant]
  47. (CODEINE) [Concomitant]
  48. DOXORUBICIN HCL [Concomitant]
  49. NYSTATIN [Concomitant]
  50. RANITIDINE [Concomitant]
  51. (SODIUM PHOSPHATE) [Concomitant]
  52. TOBRAMYCIN [Concomitant]

REACTIONS (7)
  - MUSCULAR WEAKNESS [None]
  - PARAESTHESIA [None]
  - GAIT DISTURBANCE [None]
  - NEUROPATHY PERIPHERAL [None]
  - ASTHENIA [None]
  - PAIN IN EXTREMITY [None]
  - HYPOAESTHESIA [None]
